FAERS Safety Report 8169502-9 (Version None)
Quarter: 2012Q1

REPORT INFORMATION
  Report Type: 
  Country: None (occurrence: None)
  Receive Date: 20120104
  Receipt Date: 20111130
  Transmission Date: 20120608
  Serious: No
  Sender: FDA-Public Use
  Company Number: 2011HGS-002882

PATIENT
  Sex: Female
  Weight: 77.1115 kg

DRUGS (6)
  1. OSCAL (CALCIUM CARBONATE) (CALCIUM CARBONATE) [Concomitant]
  2. GABAPENTIN [Concomitant]
  3. BENLYSTA [Suspect]
     Indication: SYSTEMIC LUPUS ERYTHEMATOSUS
     Dosage: 1 IN 28 D, INTRAVENOUS DRIP
     Route: 041
     Dates: start: 20111028
  4. HYDROXYCHLOROQUINE (HYDROXYCHLOROQUINE) (HYDROXYCHLOROQUINE) [Concomitant]
  5. NABUMETONE (NABUMETONE) (NABUMETONE) [Concomitant]
  6. OMEGA-3-ACID ETHYL ESTERS (LOVAZA) [Concomitant]

REACTIONS (2)
  - FEELING HOT [None]
  - DRY MOUTH [None]
